FAERS Safety Report 8260149-2 (Version None)
Quarter: 2012Q2

REPORT INFORMATION
  Report Type: 
  Country: None (occurrence: None)
  Receive Date: 20120404
  Receipt Date: 20120328
  Transmission Date: 20120825
  Serious: Yes (Other)
  Sender: FDA-Public Use
  Company Number: CA-JNJFOC-20120303634

PATIENT
  Sex: Female
  Weight: 52 kg

DRUGS (6)
  1. REMICADE [Suspect]
     Route: 042
     Dates: start: 20120207
  2. HYDROCORTISONE [Concomitant]
     Indication: PREMEDICATION
     Route: 042
  3. REMICADE [Suspect]
     Route: 042
     Dates: start: 20120124
  4. BENADRYL [Concomitant]
     Indication: PREMEDICATION
     Route: 065
  5. ACETAMINOPHEN [Concomitant]
     Indication: PREMEDICATION
     Route: 065
  6. REMICADE [Suspect]
     Indication: CROHN'S DISEASE
     Route: 042
     Dates: start: 20120306, end: 20120307

REACTIONS (8)
  - SWOLLEN TONGUE [None]
  - INFUSION RELATED REACTION [None]
  - CYANOSIS [None]
  - DYSPNOEA [None]
  - MALAISE [None]
  - BODY TEMPERATURE INCREASED [None]
  - NAUSEA [None]
  - VOMITING [None]
